FAERS Safety Report 18957204 (Version 9)
Quarter: 2021Q3

REPORT INFORMATION
  Report Type: Report from Study
  Country: US (occurrence: US)
  Receive Date: 20210302
  Receipt Date: 20210921
  Transmission Date: 20211014
  Serious: Yes (Other)
  Sender: FDA-Public Use
  Company Number: NVSC2021US041745

PATIENT
  Age: 68 Year
  Sex: Male

DRUGS (4)
  1. ENTRESTO [Suspect]
     Active Substance: SACUBITRIL\VALSARTAN
     Dosage: 1.5 DF, BID (24/26 MG) (1 AND 1/2 TABLETS)
     Route: 048
     Dates: start: 202101
  2. ENTRESTO [Suspect]
     Active Substance: SACUBITRIL\VALSARTAN
     Dosage: 1 DF, BID (1 TABLET)
     Route: 048
     Dates: start: 20210101
  3. ENTRESTO [Suspect]
     Active Substance: SACUBITRIL\VALSARTAN
     Indication: CARDIAC FAILURE CONGESTIVE
     Dosage: 1 DF, BID (49/51 MG)
     Route: 048
     Dates: start: 202011
  4. ENTRESTO [Suspect]
     Active Substance: SACUBITRIL\VALSARTAN
     Dosage: 1.5 DF, BID (24/26 MG)
     Route: 048
     Dates: start: 20210318

REACTIONS (8)
  - Dizziness [Recovering/Resolving]
  - Incorrect dose administered [Recovered/Resolved]
  - Cough [Unknown]
  - Hypotension [Recovered/Resolved]
  - Wrong technique in product usage process [Unknown]
  - Myocardial infarction [Unknown]
  - Wrong technique in product usage process [Recovered/Resolved]
  - Dysphonia [Recovering/Resolving]

NARRATIVE: CASE EVENT DATE: 20210101
